FAERS Safety Report 6382774-6 (Version None)
Quarter: 2009Q3

REPORT INFORMATION
  Report Type: 
  Country: None (occurrence: None)
  Receive Date: 20090928
  Receipt Date: 20090928
  Transmission Date: 20100115
  Serious: Yes (Other)
  Sender: FDA-Public Use
  Company Number: None

PATIENT
  Sex: Female
  Weight: 64.8644 kg

DRUGS (1)
  1. PROMETHAZINE [Suspect]
     Indication: NAUSEA
     Dosage: 25 MG ONCE IM
     Route: 030
     Dates: start: 20090911, end: 20090911

REACTIONS (2)
  - INJECTION SITE PAIN [None]
  - PROCEDURAL PAIN [None]
